FAERS Safety Report 13357362 (Version 1)
Quarter: 2017Q1

REPORT INFORMATION
  Report Type: Spontaneous
  Country: US (occurrence: US)
  Receive Date: 20170322
  Receipt Date: 20170322
  Transmission Date: 20170429
  Serious: No
  Sender: FDA-Public Use
  Company Number: US-ENDO PHARMACEUTICALS INC-2016-006432

PATIENT
  Age: 73 Year
  Sex: Female

DRUGS (1)
  1. OXYCODONE HCL 15MG [Suspect]
     Active Substance: OXYCODONE HYDROCHLORIDE
     Indication: PAIN
     Route: 065

REACTIONS (6)
  - Feeling abnormal [Unknown]
  - Euphoric mood [Unknown]
  - Drug effect decreased [Unknown]
  - Urine analysis abnormal [Unknown]
  - Dizziness [Unknown]
  - Pain [Unknown]
